FAERS Safety Report 13033625 (Version 1)
Quarter: 2016Q4

REPORT INFORMATION
  Report Type: Spontaneous
  Country: US (occurrence: US)
  Receive Date: 20161216
  Receipt Date: 20161216
  Transmission Date: 20170207
  Serious: Yes (Hospitalization)
  Sender: FDA-Public Use
  Company Number: US-ASTRAZENECA-2016SF31624

PATIENT
  Age: 62 Year
  Sex: Female
  Weight: 43.1 kg

DRUGS (2)
  1. OMEPRAZOLE. [Suspect]
     Active Substance: OMEPRAZOLE
     Indication: GASTROOESOPHAGEAL REFLUX DISEASE
     Route: 048
     Dates: start: 2008, end: 2016
  2. OMEPRAZOLE. [Suspect]
     Active Substance: OMEPRAZOLE
     Indication: GASTROOESOPHAGEAL REFLUX DISEASE
     Route: 048
     Dates: start: 2008, end: 2016

REACTIONS (9)
  - Hepatic enzyme increased [Unknown]
  - Pancreatic neoplasm [Unknown]
  - Chronic kidney disease [Unknown]
  - Weight gain poor [Unknown]
  - Systemic lupus erythematosus [Unknown]
  - Clostridium difficile infection [Unknown]
  - Serum ferritin increased [Unknown]
  - Chest pain [Unknown]
  - Electrolyte imbalance [Unknown]

NARRATIVE: CASE EVENT DATE: 2012
